FAERS Safety Report 8844394 (Version 2)
Quarter: 2012Q4

REPORT INFORMATION
  Report Type: 
  Country: US (occurrence: US)
  Receive Date: 20121017
  Receipt Date: 20121203
  Transmission Date: 20130627
  Serious: Yes (Other)
  Sender: FDA-Public Use
  Company Number: PHEH2012US020145

PATIENT
  Sex: Female

DRUGS (7)
  1. DIOVAN HCT [Suspect]
     Indication: HYPERTENSION
     Dosage: 1 DF, BID (valsartan 160mg and hydrochlorothiazide 12.5mg)
  2. ATENOLOL [Concomitant]
  3. PREVACID [Concomitant]
  4. CLONIDINE [Concomitant]
  5. AMILORIDE [Concomitant]
  6. POTASSIUM [Concomitant]
  7. ACETYLSALICYLIC ACID [Concomitant]

REACTIONS (6)
  - Breast cancer [Unknown]
  - Adrenal gland cancer [Unknown]
  - Cardiac murmur [Unknown]
  - Gastrooesophageal reflux disease [Unknown]
  - Feeling abnormal [Unknown]
  - Hypertension [Unknown]
